FAERS Safety Report 5073110-6 (Version None)
Quarter: 2006Q3

REPORT INFORMATION
  Report Type: 
  Country: None (occurrence: None)
  Receive Date: 20060802
  Receipt Date: 20060725
  Transmission Date: 20061208
  Serious: Yes (Other)
  Sender: FDA-Public Use
  Company Number: 008147

PATIENT
  Age: 16 Year
  Sex: Female
  Weight: 56.7 kg

DRUGS (2)
  1. CLARAVIS [Suspect]
     Indication: ACNE
     Dosage: 1 CAPS, QD, ORAL
     Route: 048
     Dates: start: 20060606, end: 20060724
  2. ORTHO TRI-CYCLEN [Concomitant]

REACTIONS (2)
  - DEPRESSION [None]
  - SUICIDAL IDEATION [None]
